FAERS Safety Report 6183419-0 (Version None)
Quarter: 2009Q2

REPORT INFORMATION
  Report Type: 
  Country: None (occurrence: None)
  Receive Date: 20090507
  Receipt Date: 20090428
  Transmission Date: 20091009
  Serious: Yes (Hospitalization)
  Sender: FDA-Public Use
  Company Number: US-MERCK-0710USA03060

PATIENT
  Age: 73 Year
  Sex: Female

DRUGS (4)
  1. FOSAMAX [Suspect]
     Indication: OSTEOPENIA
     Route: 048
     Dates: start: 19960101, end: 19980101
  2. FOSAMAX [Suspect]
     Route: 048
     Dates: start: 19980101, end: 20050501
  3. FOSAMAX [Suspect]
     Indication: OSTEOPOROSIS PROPHYLAXIS
     Route: 048
     Dates: start: 19960101, end: 19980101
  4. FOSAMAX [Suspect]
     Route: 048
     Dates: start: 19980101, end: 20050501

REACTIONS (19)
  - ABSCESS [None]
  - ANXIETY [None]
  - BLOOD CHOLESTEROL INCREASED [None]
  - DENTAL NECROSIS [None]
  - DEPRESSION [None]
  - EDENTULOUS [None]
  - GALLBLADDER DISORDER [None]
  - GINGIVAL INFECTION [None]
  - HERPES ZOSTER [None]
  - HYPERTENSION [None]
  - INFECTION [None]
  - JAW FRACTURE [None]
  - NEPHROLITHIASIS [None]
  - OEDEMA MOUTH [None]
  - PAIN IN JAW [None]
  - RESORPTION BONE INCREASED [None]
  - SPINAL COLUMN STENOSIS [None]
  - TEMPOROMANDIBULAR JOINT SYNDROME [None]
  - TRISMUS [None]
